FAERS Safety Report 7576423-9 (Version None)
Quarter: 2011Q2

REPORT INFORMATION
  Report Type: 
  Country: None (occurrence: None)
  Receive Date: 20110628
  Receipt Date: 20110620
  Transmission Date: 20111010
  Serious: Yes (Death)
  Sender: FDA-Public Use
  Company Number: US-ELI_LILLY_AND_COMPANY-US201104006536

PATIENT
  Age: 78 Year
  Sex: Female
  Weight: 48.526 kg

DRUGS (11)
  1. ENALAPRIL MALEATE [Concomitant]
  2. VITAMIN D [Concomitant]
  3. DARVOCET [Concomitant]
  4. FUROSEMIDE [Concomitant]
  5. ASCORBIC ACID [Concomitant]
  6. VITAMIN E [Concomitant]
  7. POTASSIUM CHLORIDE [Concomitant]
  8. HYDROXYZINE [Concomitant]
  9. SIMVASTATIN [Concomitant]
  10. ASPIRIN [Concomitant]
     Dosage: UNK
  11. FORTEO [Suspect]
     Indication: OSTEOPOROSIS

REACTIONS (1)
  - TRANSIENT ISCHAEMIC ATTACK [None]
